FAERS Safety Report 5799279-3 (Version None)
Quarter: 2008Q3

REPORT INFORMATION
  Report Type: 
  Country: None (occurrence: None)
  Receive Date: 20080702
  Receipt Date: 20080624
  Transmission Date: 20090109
  Serious: Yes (Death, Other)
  Sender: FDA-Public Use
  Company Number: EG-PFIZER INC-2008050165

PATIENT
  Weight: 80 kg

DRUGS (4)
  1. VFEND [Suspect]
     Indication: CANDIDIASIS
     Dosage: DAILY DOSE:12MCG/KG
     Route: 042
  2. VFEND [Suspect]
     Dosage: DAILY DOSE:8MCG/KG
     Route: 042
  3. CYCLOSPORINE [Concomitant]
     Route: 042
  4. ANTIBIOTICS [Concomitant]
     Route: 042

REACTIONS (2)
  - DEATH [None]
  - DRUG INEFFECTIVE [None]
